FAERS Safety Report 10152544 (Version 7)
Quarter: 2014Q4

REPORT INFORMATION
  Report Type: Spontaneous
  Country: JP (occurrence: JP)
  Receive Date: 20140505
  Receipt Date: 20141107
  Transmission Date: 20150528
  Serious: Yes (Hospitalization)
  Sender: FDA-Public Use
  Company Number: JP-B.I. PHARMACEUTICALS,INC./RIDGEFIELD-2014-BI-16787NB

PATIENT
  Age: 79 Year
  Sex: Female
  Weight: 72 kg

DRUGS (4)
  1. FEBURIC [Suspect]
     Active Substance: FEBUXOSTAT
     Indication: PRODUCT USED FOR UNKNOWN INDICATION
     Dosage: 0.5 ANZ
     Route: 065
  2. ARTIST [Concomitant]
     Active Substance: CARVEDILOL
     Indication: HYPERTENSION
     Dosage: 2.5 MG
     Route: 048
     Dates: start: 20100709
  3. PRAZAXA [Suspect]
     Active Substance: DABIGATRAN ETEXILATE MESYLATE
     Indication: ATRIAL FIBRILLATION
     Dosage: 220 MG
     Route: 048
     Dates: start: 20120827, end: 20140409
  4. DIART [Concomitant]
     Active Substance: AZOSEMIDE
     Indication: OEDEMA
     Dosage: 30 MG
     Route: 048
     Dates: start: 20100709

REACTIONS (11)
  - Blood creatine phosphokinase increased [Not Recovered/Not Resolved]
  - Nasopharyngitis [Unknown]
  - Petechiae [Recovered/Resolved]
  - Hyperuricaemia [Unknown]
  - Rhabdomyolysis [Not Recovered/Not Resolved]
  - Pain in extremity [Recovered/Resolved]
  - Acute kidney injury [Not Recovered/Not Resolved]
  - Fall [Recovered/Resolved]
  - Epistaxis [Not Recovered/Not Resolved]
  - Haemoptysis [Recovered/Resolved]
  - Gastric ulcer [Recovered/Resolved]

NARRATIVE: CASE EVENT DATE: 20131113
